FAERS Safety Report 12555451 (Version 1)
Quarter: 2016Q3

REPORT INFORMATION
  Report Type: Spontaneous
  Country: US (occurrence: None)
  Receive Date: 20160713
  Receipt Date: 20160713
  Transmission Date: 20161109
  Serious: Yes (Death)
  Sender: FDA-Public Use
  Company Number: None

PATIENT
  Age: 70 Year
  Sex: Male

DRUGS (24)
  1. ZYTIGA [Suspect]
     Active Substance: ABIRATERONE ACETATE
     Indication: NEOPLASM MALIGNANT
     Route: 048
     Dates: start: 201605, end: 201607
  2. PREDNISONE. [Concomitant]
     Active Substance: PREDNISONE
  3. VICODIN [Concomitant]
     Active Substance: ACETAMINOPHEN\HYDROCODONE BITARTRATE
  4. OXYCODONE [Concomitant]
     Active Substance: OXYCODONE
  5. KETOROLAC [Concomitant]
     Active Substance: KETOROLAC\KETOROLAC TROMETHAMINE
  6. GEMFIBROZIL. [Concomitant]
     Active Substance: GEMFIBROZIL
  7. PREDNISOLONE. [Concomitant]
     Active Substance: PREDNISOLONE
  8. CARBIDOPA/LEVODOPA [Concomitant]
     Active Substance: CARBIDOPA\LEVODOPA
  9. CARBIDOPA. [Concomitant]
     Active Substance: CARBIDOPA
  10. DEXAMETHASONE. [Concomitant]
     Active Substance: DEXAMETHASONE
  11. GABAPENTIN. [Concomitant]
     Active Substance: GABAPENTIN
  12. MEGESTROL [Concomitant]
     Active Substance: MEGESTROL
  13. FOLIC ACID. [Concomitant]
     Active Substance: FOLIC ACID
  14. FLUOXETINE [Concomitant]
     Active Substance: FLUOXETINE HYDROCHLORIDE
  15. OXYCODONE/APAP [Concomitant]
     Active Substance: ACETAMINOPHEN\OXYCODONE HYDROCHLORIDE
  16. MIRTAZAPINE. [Concomitant]
     Active Substance: MIRTAZAPINE
  17. HYDROCODONE BITARTRATE AND ACETAMINOPHEN [Concomitant]
     Active Substance: ACETAMINOPHEN\HYDROCODONE BITARTRATE
  18. OXYCONTIN [Concomitant]
     Active Substance: OXYCODONE HYDROCHLORIDE
  19. DIPHENOX/ATROPINE [Concomitant]
  20. BUPROPION. [Concomitant]
     Active Substance: BUPROPION
  21. ONDANSETRON [Concomitant]
     Active Substance: ONDANSETRON
  22. XANAX [Concomitant]
     Active Substance: ALPRAZOLAM
  23. TRIAZOLAM. [Concomitant]
     Active Substance: TRIAZOLAM
  24. MORPHINE [Concomitant]
     Active Substance: MORPHINE

REACTIONS (1)
  - Death [None]

NARRATIVE: CASE EVENT DATE: 20160711
